FAERS Safety Report 9468136 (Version 2)
Quarter: 2013Q3

REPORT INFORMATION
  Report Type: Spontaneous
  Country: IE (occurrence: IE)
  Receive Date: 20130821
  Receipt Date: 20130821
  Transmission Date: 20140515
  Serious: Yes (Hospitalization)
  Sender: FDA-Public Use
  Company Number: IE-PFIZER INC-2013215546

PATIENT
  Age: 68 Year
  Sex: Female

DRUGS (4)
  1. CARDURA XL [Suspect]
     Indication: BLOOD PRESSURE MANAGEMENT
     Dosage: UNK
     Dates: start: 20130703
  2. COVERSYL [Suspect]
     Dosage: 1 DF, 1X/DAY
     Route: 048
  3. STILNOCT [Concomitant]
     Dosage: 5 MG, 1X/DAY
     Route: 048
  4. CALCICHEW-D3 FORTE [Concomitant]
     Dosage: 1 DF, 2X/DAY
     Route: 048

REACTIONS (8)
  - Orthostatic hypotension [Recovered/Resolved]
  - Asthenia [Recovered/Resolved]
  - Chest pain [Recovered/Resolved]
  - Syncope [Recovered/Resolved]
  - Haematemesis [Recovered/Resolved]
  - Dizziness [Recovered/Resolved]
  - Hyponatraemia [Recovered/Resolved]
  - Urinary tract infection [Unknown]
